FAERS Safety Report 9184037 (Version 1)
Quarter: 2013Q1

REPORT INFORMATION
  Report Type: Spontaneous
  Country: IL (occurrence: IL)
  Receive Date: 20130322
  Receipt Date: 20130322
  Transmission Date: 20140127
  Serious: Yes (Other)
  Sender: FDA-Public Use
  Company Number: IL-AMGEN-ISRSP2013019347

PATIENT
  Age: 48 Year
  Sex: Male

DRUGS (3)
  1. ENBREL [Suspect]
     Indication: RHEUMATOID ARTHRITIS
     Dosage: 50 MG, WEEKLY
     Dates: start: 2013, end: 2013
  2. PREDNISONE [Concomitant]
     Dosage: 5 MG, UNK
  3. INSULIN [Concomitant]
     Dosage: UNK
     Route: 058

REACTIONS (3)
  - Rheumatoid arthritis [Unknown]
  - Asthma [Unknown]
  - Cough [Unknown]
